FAERS Safety Report 9728219 (Version 3)
Quarter: 2014Q1

REPORT INFORMATION
  Report Type: Spontaneous
  Country: NZ (occurrence: NZ)
  Receive Date: 20131204
  Receipt Date: 20140112
  Transmission Date: 20141002
  Serious: Yes (Other)
  Sender: FDA-Public Use
  Company Number: NZ-ROCHE-1312227

PATIENT
  Sex: Female

DRUGS (4)
  1. MABTHERA [Suspect]
     Indication: RHEUMATOID ARTHRITIS
     Route: 065
     Dates: start: 20120404, end: 20120418
  2. MABTHERA [Suspect]
     Route: 065
     Dates: start: 20121105, end: 20121119
  3. MABTHERA [Suspect]
     Route: 065
     Dates: start: 20130528, end: 20130612
  4. METHOTREXATE [Concomitant]
     Indication: RHEUMATOID ARTHRITIS

REACTIONS (1)
  - Lung neoplasm malignant [Unknown]
